FAERS Safety Report 9370514 (Version 1)
Quarter: 2013Q2

REPORT INFORMATION
  Report Type: Spontaneous
  Country: US (occurrence: US)
  Receive Date: 20130626
  Receipt Date: 20130626
  Transmission Date: 20140414
  Serious: Yes (Death)
  Sender: FDA-Public Use
  Company Number: US-AMGEN-USASP2013044895

PATIENT
  Age: 83 Year
  Sex: Male

DRUGS (15)
  1. ENBREL [Suspect]
     Indication: PRODUCT USED FOR UNKNOWN INDICATION
     Dosage: 50 MG, QWK
     Route: 058
  2. ALENDRONATE [Concomitant]
     Dosage: 35 MG, UNK
  3. NEXIUM                             /01479302/ [Concomitant]
     Dosage: 20 MG, UNK
  4. GLYBURIDE [Concomitant]
     Dosage: 5 MG, UNK
  5. HYDROXYCHLOROQUINE [Concomitant]
     Dosage: 200 MG, UNK
  6. METHOTREXATE [Concomitant]
     Dosage: 2.5 MG, UNK
  7. TERAZOSIN [Concomitant]
     Dosage: 10 MG, UNK
  8. FINASTERIDE [Concomitant]
     Dosage: 5 MG, UNK
  9. VITAMIN B6 [Concomitant]
     Dosage: 250 MG, UNK
  10. VITAMIN B12                        /00056201/ [Concomitant]
     Dosage: 2000 MUG, UNK
  11. VITAMIN D3 [Concomitant]
     Dosage: 10000 UNIT, UNK
  12. FOLIC ACID [Concomitant]
     Dosage: UNK
  13. GLUCOSAMINE, CHONDROITIN + MSM [Concomitant]
     Dosage: UNK
  14. CALCITRAL D                        /01606701/ [Concomitant]
     Dosage: UNK
  15. MULTIVITAMINS, PLAIN [Concomitant]
     Dosage: UNK

REACTIONS (1)
  - Death [Fatal]
